FAERS Safety Report 6716449-8 (Version None)
Quarter: 2010Q2

REPORT INFORMATION
  Report Type: 
  Country: None (occurrence: None)
  Receive Date: 20100507
  Receipt Date: 20100502
  Transmission Date: 20101027
  Serious: Yes (Other)
  Sender: FDA-Public Use
  Company Number: US-ABBOTT-10P-163-0629619-00

PATIENT
  Sex: Female
  Weight: 58.566 kg

DRUGS (16)
  1. HUMIRA [Suspect]
     Indication: CROHN'S DISEASE
     Dates: start: 20081101
  2. HUMIRA [Suspect]
  3. PROPRANOLOL [Concomitant]
     Indication: PORTAL HYPERTENSION
  4. EFFEXOR [Concomitant]
     Indication: DEPRESSION
  5. AMITRIPTLINE HYDROCHLORIDE TAB [Concomitant]
     Indication: DEPRESSION
  6. LONOX [Concomitant]
     Indication: ABNORMAL FAECES
  7. PRILOSID [Concomitant]
     Indication: CROHN'S DISEASE
  8. DILVAN [Concomitant]
     Indication: ANTIVIRAL PROPHYLAXIS
  9. TRICOR [Concomitant]
     Indication: BLOOD CHOLESTEROL INCREASED
  10. METFORMIN [Concomitant]
     Indication: DIABETES MELLITUS
  11. AZATHIOPRINE [Concomitant]
     Indication: CROHN'S DISEASE
  12. CYTAMEL [Concomitant]
     Indication: DRUG USE FOR UNKNOWN INDICATION
  13. LEVOXYL [Concomitant]
     Indication: HYPOTHYROIDISM
  14. VIVELLE [Concomitant]
     Indication: HORMONE REPLACEMENT THERAPY
  15. ACIDOPHILIS [Concomitant]
     Indication: DRUG USE FOR UNKNOWN INDICATION
  16. CIPRO [Concomitant]
     Indication: CROHN'S DISEASE

REACTIONS (4)
  - ANAEMIA [None]
  - ARTERIAL HAEMORRHAGE [None]
  - ARTERIAL OCCLUSIVE DISEASE [None]
  - HAEMORRHOIDAL HAEMORRHAGE [None]
